FAERS Safety Report 5918555-4 (Version None)
Quarter: 2008Q4

REPORT INFORMATION
  Report Type: 
  Country: None (occurrence: None)
  Receive Date: 20081010
  Receipt Date: 20080925
  Transmission Date: 20090506
  Serious: Yes (Death)
  Sender: FDA-Public Use
  Company Number: 2008-0008

PATIENT
  Age: 22 Year
  Sex: Male

DRUGS (3)
  1. CITALOPRAM HYDROBROMIDE [Suspect]
  2. DIAZEPAM [Concomitant]
  3. METHADONE HCL [Concomitant]

REACTIONS (1)
  - MULTIPLE DRUG OVERDOSE [None]
